FAERS Safety Report 9531764 (Version 1)
Quarter: 2013Q3

REPORT INFORMATION
  Report Type: Spontaneous
  Country: US (occurrence: US)
  Receive Date: 20130918
  Receipt Date: 20130918
  Transmission Date: 20140515
  Serious: No
  Sender: FDA-Public Use
  Company Number: US-PFIZER INC-2013265670

PATIENT
  Age: 29 Month
  Sex: Male

DRUGS (3)
  1. CHILDRENS ADVIL [Suspect]
     Indication: NASOPHARYNGITIS
     Dosage: ONE TEA SPOON, TWO TIMES A DAY
     Route: 048
     Dates: start: 20130912
  2. DIPHENHYDRAMINE HYDROCHLORIDE [Concomitant]
     Indication: SNEEZING
     Dosage: ONE TEASPOON, ONCE DAILY
  3. DIPHENHYDRAMINE HYDROCHLORIDE [Concomitant]
     Indication: COUGH

REACTIONS (2)
  - Extra dose administered [Unknown]
  - Somnolence [Unknown]
